FAERS Safety Report 7289596-2 (Version None)
Quarter: 2011Q1

REPORT INFORMATION
  Report Type: 
  Country: None (occurrence: None)
  Receive Date: 20110125
  Receipt Date: 20101231
  Transmission Date: 20110831
  Serious: Yes (Death)
  Sender: FDA-Public Use
  Company Number: AUR-APL-2011-00022

PATIENT
  Age: 45 Year
  Sex: Female

DRUGS (8)
  1. AMLODIPINE BESYLATE 10MG TABLETS [Suspect]
     Dosage: -30 TABLETS-ONCE-ORAL
     Route: 048
  2. METOPROLOL 25MG TABLETS [Suspect]
     Dosage: ~10 TABLETS-ONCE-ORAL
     Route: 048
  3. IRBESARTAN [Suspect]
     Dosage: ORAL
     Route: 048
  4. FENOFIBRIC ACID [Suspect]
     Dosage: ORAL
     Route: 048
  5. HYDROCHLOROTHIAZIDE [Suspect]
     Dosage: ORAL
     Route: 048
  6. ZOLPIDEM [Suspect]
     Dosage: ORAL
     Route: 048
  7. METFORMIN 1000MG TABLET [Suspect]
     Dosage: ~9 TABLETS - ONCE - ORAL
     Route: 048
  8. SITAGLIPTIN [Suspect]
     Dosage: ORAL
     Route: 048

REACTIONS (13)
  - UNRESPONSIVE TO STIMULI [None]
  - FAECAL INCONTINENCE [None]
  - LETHARGY [None]
  - ALCOHOL USE [None]
  - LACTIC ACIDOSIS [None]
  - PUPIL FIXED [None]
  - HYPOTENSION [None]
  - COMPLETED SUICIDE [None]
  - MULTIPLE DRUG OVERDOSE [None]
  - SOMNOLENCE [None]
  - DYSARTHRIA [None]
  - ATRIOVENTRICULAR BLOCK FIRST DEGREE [None]
  - BLOOD SODIUM INCREASED [None]
